FAERS Safety Report 5250306-1 (Version None)
Quarter: 2007Q1

REPORT INFORMATION
  Report Type: 
  Country: None (occurrence: None)
  Receive Date: 20070228
  Receipt Date: 20060615
  Transmission Date: 20070707
  Serious: Yes (Other)
  Sender: FDA-Public Use
  Company Number: US-GLAXOSMITHKLINE-A0598615A

PATIENT
  Age: 16 Year
  Sex: Female

DRUGS (3)
  1. LAMICTAL [Suspect]
     Indication: BIPOLAR DISORDER
     Dosage: 75MG PER DAY
     Route: 048
     Dates: start: 20060204, end: 20060307
  2. REMERON [Concomitant]
     Indication: DEPRESSION
     Dosage: 45MG PER DAY
     Route: 048
     Dates: start: 20051001, end: 20060401
  3. RISPERDAL [Concomitant]
     Route: 048
     Dates: start: 20050401

REACTIONS (2)
  - INFECTION [None]
  - LYMPHADENOPATHY [None]
